FAERS Safety Report 8023432 (Version 6)
Quarter: 2014Q2

REPORT INFORMATION
  Report Type: Spontaneous
  Country: US (occurrence: US)
  Receive Date: 20110706
  Receipt Date: 20140404
  Transmission Date: 20141212
  Serious: Yes (Hospitalization)
  Sender: FDA-Public Use
  Company Number: US-GLAXOSMITHKLINE-B0730878A

PATIENT
  Age: 53 Year
  Sex: Male

DRUGS (4)
  1. AVANDIA [Suspect]
     Indication: DIABETES MELLITUS
     Dosage: 8MG PER DAY
     Route: 048
     Dates: start: 200502, end: 200808
  2. METFORMIN [Concomitant]
  3. GLYBURIDE [Concomitant]
  4. LISINOPRIL [Concomitant]

REACTIONS (9)
  - Myocardial infarction [Not Recovered/Not Resolved]
  - Vascular pseudoaneurysm [Unknown]
  - Cardiac failure congestive [Unknown]
  - Atrial fibrillation [Unknown]
  - Myocardial ischaemia [Unknown]
  - Ischaemic cardiomyopathy [Unknown]
  - Coronary artery bypass [Unknown]
  - Coronary artery disease [Unknown]
  - Angina unstable [Unknown]
